FAERS Safety Report 6316970-0 (Version None)
Quarter: 2009Q3

REPORT INFORMATION
  Report Type: 
  Country: None (occurrence: None)
  Receive Date: 20090820
  Receipt Date: 20090819
  Transmission Date: 20100115
  Serious: Yes (Death, Other)
  Sender: FDA-Public Use
  Company Number: PHHO2009JP04066

PATIENT
  Sex: Female
  Weight: 61 kg

DRUGS (8)
  1. BLINDED NO TREATMENT RECEIVED NOMED [Suspect]
     Indication: PANCREATIC NEUROENDOCRINE TUMOUR
     Dosage: DOUBLE BLIND
     Route: 048
     Dates: start: 20081029
  2. BLINDED PLACEBO COMP-PLA+ [Suspect]
     Indication: PANCREATIC NEUROENDOCRINE TUMOUR
     Dosage: DOUBLE BLIND
     Route: 048
     Dates: start: 20081029
  3. BLINDED RAD 666 RAD+TAB+CMAS [Suspect]
     Indication: PANCREATIC NEUROENDOCRINE TUMOUR
     Dosage: DOUBLE BLIND
     Route: 048
     Dates: start: 20081029
  4. RAD 666 [Suspect]
     Indication: PANCREATIC NEUROENDOCRINE TUMOUR
     Dosage: 10 MG, QD
     Route: 048
     Dates: start: 20090126
  5. TAKEPRON [Concomitant]
  6. SUCRALFATE [Concomitant]
  7. EXCELASE [Concomitant]
  8. BIOFERMIN R [Concomitant]
     Indication: DIARRHOEA
     Dosage: UNK
     Dates: start: 20080913

REACTIONS (4)
  - PRODUCTIVE COUGH [None]
  - SUDDEN DEATH [None]
  - VOMITING [None]
  - WEIGHT DECREASED [None]
